FAERS Safety Report 6821771-0 (Version None)
Quarter: 2010Q3

REPORT INFORMATION
  Report Type: 
  Country: None (occurrence: None)
  Receive Date: 20100707
  Receipt Date: 20100707
  Transmission Date: 20110219
  Serious: Yes (Life-Threatening, Hospitalization, Other)
  Sender: FDA-Public Use
  Company Number: None

PATIENT
  Age: 21 Year
  Sex: Female

DRUGS (1)
  1. ACETADOTE [Suspect]
     Indication: DRUG TOXICITY
     Dosage: 20 TO 50 MG/KG/HR IV ; 45 TO 100 MG/KG/HR IV
     Route: 042
     Dates: start: 20061122, end: 20061124

REACTIONS (8)
  - APALLIC SYNDROME [None]
  - BRAIN HERNIATION [None]
  - CONFUSIONAL STATE [None]
  - DRUG DISPENSING ERROR [None]
  - MEDICATION ERROR [None]
  - NAUSEA [None]
  - OVERDOSE [None]
  - STATUS EPILEPTICUS [None]
